FAERS Safety Report 16270058 (Version 1)
Quarter: 2019Q2

REPORT INFORMATION
  Report Type: Spontaneous
  Country: FR (occurrence: FR)
  Receive Date: 20190503
  Receipt Date: 20190503
  Transmission Date: 20190711
  Serious: Yes (Other)
  Sender: FDA-Public Use
  Company Number: FR-BAYER-2019-085222

PATIENT
  Age: 74 Year
  Sex: Male
  Weight: 80 kg

DRUGS (7)
  1. NEXAVAR [Suspect]
     Active Substance: SORAFENIB
     Indication: HEPATOCELLULAR CARCINOMA
     Dosage: 400 MG, BID (IN THE MORNING AND IN THE EVENING)
     Dates: start: 201604, end: 2016
  2. NEXAVAR [Suspect]
     Active Substance: SORAFENIB
     Indication: HEPATOCELLULAR CARCINOMA
     Dosage: 200 MG, BID
     Dates: start: 2016
  3. STIVARGA [Suspect]
     Active Substance: REGORAFENIB
     Indication: HEPATOCELLULAR CARCINOMA
     Dosage: 120 MG, QD
  4. NEXAVAR [Suspect]
     Active Substance: SORAFENIB
     Indication: HEPATOCELLULAR CARCINOMA
     Dosage: 200 MG IN THE MORNING AND IN THE EVENING
     Dates: start: 20170619
  5. NEXAVAR [Suspect]
     Active Substance: SORAFENIB
     Indication: HEPATOCELLULAR CARCINOMA
     Dosage: 200 MG IN THE MORNING AND IN THE EVENING
     Dates: end: 2018
  6. STIVARGA [Suspect]
     Active Substance: REGORAFENIB
     Indication: HEPATOCELLULAR CARCINOMA
     Dosage: 80 MG, OM (EVERY MORNING FOR 4 WEEKS)
     Dates: start: 201812
  7. NEXAVAR [Suspect]
     Active Substance: SORAFENIB
     Indication: HEPATOCELLULAR CARCINOMA
     Dosage: 200 MG, BID (IN THE MORNING AND IN THE EVENING)
     Dates: start: 201604, end: 201604

REACTIONS (16)
  - Alpha 1 foetoprotein increased [Recovering/Resolving]
  - Tumour thrombosis [Not Recovered/Not Resolved]
  - Alpha 1 foetoprotein increased [None]
  - Diarrhoea [None]
  - Diarrhoea [None]
  - Alanine aminotransferase increased [Recovering/Resolving]
  - Off label use [None]
  - Abdominal pain [Recovered/Resolved]
  - Hepatocellular injury [None]
  - Hepatocellular carcinoma [Recovering/Resolving]
  - Hepatocellular carcinoma [None]
  - Tumour necrosis [None]
  - Diarrhoea [None]
  - Off label use [None]
  - Aspartate aminotransferase increased [Recovering/Resolving]
  - Drug intolerance [None]

NARRATIVE: CASE EVENT DATE: 2016
